FAERS Safety Report 5525129-6 (Version None)
Quarter: 2007Q4

REPORT INFORMATION
  Report Type: 
  Country: None (occurrence: None)
  Receive Date: 20071119
  Receipt Date: 20071102
  Transmission Date: 20080405
  Serious: Yes (Death, Hospitalization)
  Sender: FDA-Public Use
  Company Number: 2007US002717

PATIENT
  Age: 61 Year
  Sex: Male

DRUGS (12)
  1. FK506E(MR4)(TACROLIMUS MR4 CAPSULES) [Suspect]
     Indication: HEART TRANSPLANT
     Dosage: UID/QD;
  2. PROGRAF [Suspect]
     Indication: HEART TRANSPLANT
     Dosage: BID;
  3. ZANTAC 150 [Concomitant]
  4. LIPITOR [Concomitant]
  5. FLOMAX (MORNIFLUMATE) [Concomitant]
  6. FOSAMAX [Concomitant]
  7. MULTIVITAMIN [Concomitant]
  8. COUMADIN [Concomitant]
  9. GLUCOSAMINE (GLUCOSAMINE) [Concomitant]
  10. TYLENOL [Concomitant]
  11. IMODIUM [Concomitant]
  12. METOCLOPRAMIDE (METOCLOPRAMIDE) [Concomitant]

REACTIONS (10)
  - BLOOD PRESSURE IMMEASURABLE [None]
  - DEEP VEIN THROMBOSIS [None]
  - FALL [None]
  - GASTROINTESTINAL HAEMORRHAGE [None]
  - GENERAL PHYSICAL HEALTH DETERIORATION [None]
  - OEDEMA PERIPHERAL [None]
  - PULMONARY EMBOLISM [None]
  - RENAL DISORDER [None]
  - RESPIRATORY FAILURE [None]
  - RIGHT VENTRICULAR FAILURE [None]
